FAERS Safety Report 25924804 (Version 1)
Quarter: 2025Q4

REPORT INFORMATION
  Report Type: Spontaneous
  Country: US (occurrence: None)
  Receive Date: 20251014
  Receipt Date: 20251014
  Transmission Date: 20260118
  Serious: Yes (Death)
  Sender: FDA-CTU
  Company Number: None

PATIENT
  Sex: Male

DRUGS (2)
  1. GAMMAGARD LIQUID [Suspect]
     Active Substance: HUMAN IMMUNOGLOBULIN G
     Indication: Idiopathic pulmonary fibrosis
     Dosage: 30 G GRAM(S) EVERY 4 WEEKS INTRAVENOUS
     Route: 042
     Dates: start: 20241028
  2. GAMMAGARD LIQUID [Suspect]
     Active Substance: HUMAN IMMUNOGLOBULIN G
     Indication: Idiopathic pulmonary fibrosis
     Dosage: 5 G GRAM(S) EVERY 4 WEEKS INTRAVENOUS?
     Route: 042
     Dates: start: 20241028

REACTIONS (1)
  - Lung disorder [None]
